FAERS Safety Report 24633949 (Version 2)
Quarter: 2025Q1

REPORT INFORMATION
  Report Type: Spontaneous
  Country: US (occurrence: US)
  Receive Date: 20241118
  Receipt Date: 20250108
  Transmission Date: 20250409
  Serious: No
  Sender: SUNOVION
  Company Number: US-SUMITOMO PHARMA SWITZERLAND GMBH-2024SPA004957

PATIENT

DRUGS (3)
  1. GEMTESA [Suspect]
     Active Substance: VIBEGRON
     Indication: Urge incontinence
     Dosage: 75 MG, QD
     Route: 048
     Dates: start: 20241016
  2. OXYBUTYNIN [Suspect]
     Active Substance: OXYBUTYNIN
  3. OXYBUTYNIN [Suspect]
     Active Substance: OXYBUTYNIN
     Route: 065

REACTIONS (1)
  - Micturition urgency [Not Recovered/Not Resolved]
